FAERS Safety Report 4327142-3 (Version None)
Quarter: 2004Q1

REPORT INFORMATION
  Report Type: 
  Country: None (occurrence: None)
  Receive Date: 20040330
  Receipt Date: 20040329
  Transmission Date: 20041129
  Serious: Yes (Hospitalization)
  Sender: FDA-Public Use
  Company Number: US-GLAXOSMITHKLINE-A0504924A

PATIENT
  Age: 73 Year
  Sex: Female

DRUGS (4)
  1. AVANDAMET [Suspect]
     Indication: DIABETES MELLITUS NON-INSULIN-DEPENDENT
     Route: 048
     Dates: start: 20040324
  2. DIOVAN [Concomitant]
  3. CELEBREX [Concomitant]
  4. ZOCOR [Concomitant]

REACTIONS (1)
  - ABDOMINAL PAIN UPPER [None]
